FAERS Safety Report 8260225-4 (Version None)
Quarter: 2012Q2

REPORT INFORMATION
  Report Type: 
  Country: None (occurrence: None)
  Receive Date: 20120404
  Receipt Date: 20120322
  Transmission Date: 20120825
  Serious: Yes (Hospitalization)
  Sender: FDA-Public Use
  Company Number: JP-MYLANLABS-2012S1006465

PATIENT
  Age: 55 Year
  Sex: Female
  Weight: 50 kg

DRUGS (4)
  1. AMLODIPINE [Concomitant]
     Indication: HYPERTENSION
     Dosage: 5 MG/DAY
     Route: 065
  2. OLMESARTAN MEDOXOMIL [Suspect]
     Indication: SUICIDE ATTEMPT
     Route: 065
  3. OLMESARTAN MEDOXOMIL [Concomitant]
     Indication: HYPERTENSION
     Dosage: 10 MG/DAY
     Route: 065
  4. AMLODIPINE [Suspect]
     Indication: SUICIDE ATTEMPT
     Route: 065

REACTIONS (3)
  - INTENTIONAL OVERDOSE [None]
  - SUICIDE ATTEMPT [None]
  - HYPOTENSION [None]
